FAERS Safety Report 4424179-0 (Version None)
Quarter: 2004Q3

REPORT INFORMATION
  Report Type: 
  Country: None (occurrence: None)
  Receive Date: 20040810
  Receipt Date: 20040810
  Transmission Date: 20050211
  Serious: Yes (Hospitalization)
  Sender: FDA-Public Use
  Company Number: None

PATIENT
  Age: 55 Year
  Sex: Male
  Weight: 68.0396 kg

DRUGS (13)
  1. ADRIAMYCIN 33.275 MG/M2 [Suspect]
     Indication: B-CELL LYMPHOMA
     Dosage: 58.5 MG IV
     Route: 042
     Dates: start: 20040713
  2. ETOPOSIDE [Suspect]
     Dosage: 281 MG IV
     Route: 042
     Dates: start: 20040720
  3. CYTOXAN [Suspect]
  4. PREDNISONE [Suspect]
  5. PROCHLORPERAZINE [Concomitant]
  6. GLIPIZIDE [Concomitant]
  7. ONDANSETRON [Concomitant]
  8. INSULIN LISPO [Concomitant]
  9. ASPIRIN [Concomitant]
  10. ZOLOFT [Concomitant]
  11. DOCUSATE SODUIM [Concomitant]
  12. LISINOPRIL [Concomitant]
  13. BUPROPION HCL [Concomitant]

REACTIONS (8)
  - ANGINA PECTORIS [None]
  - HAEMORRHOIDS [None]
  - NEUTROPENIA [None]
  - NOCTURIA [None]
  - ORAL PAIN [None]
  - PROCTALGIA [None]
  - RIB FRACTURE [None]
  - STOMATITIS [None]
